FAERS Safety Report 6431995-2 (Version None)
Quarter: 2009Q4

REPORT INFORMATION
  Report Type: 
  Country: None (occurrence: None)
  Receive Date: 20091109
  Receipt Date: 20091102
  Transmission Date: 20100525
  Serious: Yes (Other)
  Sender: FDA-Public Use
  Company Number: US-JNJFOC-20091005707

PATIENT
  Sex: Male
  Weight: 33.11 kg

DRUGS (1)
  1. CONCERTA [Suspect]
     Indication: ATTENTION DEFICIT/HYPERACTIVITY DISORDER
     Route: 048
     Dates: start: 20070101

REACTIONS (3)
  - ABNORMAL BEHAVIOUR [None]
  - GROWTH RETARDATION [None]
  - THERAPEUTIC RESPONSE DECREASED [None]
